FAERS Safety Report 6246391-0 (Version None)
Quarter: 2009Q2

REPORT INFORMATION
  Report Type: 
  Country: None (occurrence: None)
  Receive Date: 20090624
  Receipt Date: 20090624
  Transmission Date: 20091009
  Serious: Yes (Hospitalization)
  Sender: FDA-Public Use
  Company Number: None

PATIENT
  Age: 72 Year
  Sex: Female
  Weight: 99.8 kg

DRUGS (8)
  1. COUMADIN [Suspect]
     Indication: ATRIAL FIBRILLATION
     Dosage: 7.5/5 MG TTHSS/MWF PO CHRONIC, RECENT CHANGE
     Route: 048
  2. ASPIRIN [Suspect]
     Indication: ATRIAL FIBRILLATION
     Dosage: CHRONIC
  3. LANOXIN [Concomitant]
  4. POTASSIUM CHLORIDE [Concomitant]
  5. HYDROCHLOROTHIAZIDE [Concomitant]
  6. M.V.I. [Concomitant]
  7. FISH OIL [Concomitant]
  8. ALLEGRA [Concomitant]

REACTIONS (5)
  - CARDIAC TELEMETRY ABNORMAL [None]
  - DIVERTICULITIS INTESTINAL HAEMORRHAGIC [None]
  - HAEMATOCHEZIA [None]
  - MUSCLE SPASMS [None]
  - THERAPEUTIC AGENT TOXICITY [None]
